FAERS Safety Report 7282040-0 (Version None)
Quarter: 2011Q1

REPORT INFORMATION
  Report Type: 
  Country: None (occurrence: None)
  Receive Date: 20110208
  Receipt Date: 20110120
  Transmission Date: 20110831
  Serious: Yes (Other)
  Sender: FDA-Public Use
  Company Number: PHHY2011CH05077

PATIENT

DRUGS (1)
  1. CEFTRIAXONE [Suspect]
     Indication: CHOLANGITIS
     Dosage: UNK
     Route: 042

REACTIONS (4)
  - ALCOHOLIC LIVER DISEASE [None]
  - CHOLESTASIS [None]
  - LIVER INJURY [None]
  - HEPATIC STEATOSIS [None]
